FAERS Safety Report 4755425-1 (Version None)
Quarter: 2005Q3

REPORT INFORMATION
  Report Type: 
  Country: None (occurrence: None)
  Receive Date: 20050826
  Receipt Date: 20050826
  Transmission Date: 20060218
  Serious: Yes (Life-Threatening, Hospitalization, Disabling, Other)
  Sender: FDA-Public Use
  Company Number: None

PATIENT
  Age: 25 Year
  Sex: Female
  Weight: 74.8435 kg

DRUGS (2)
  1. ZOLOFT [Suspect]
     Indication: ANXIETY
     Dosage: 50MG  1X DAY PO
     Route: 048
     Dates: start: 20050501, end: 20050603
  2. ZOLOFT [Suspect]
     Indication: DEPRESSION
     Dosage: 50MG  1X DAY PO
     Route: 048
     Dates: start: 20050501, end: 20050603

REACTIONS (5)
  - DYSPNOEA [None]
  - FATIGUE [None]
  - HEADACHE [None]
  - MUSCLE INJURY [None]
  - MYALGIA [None]
